FAERS Safety Report 4269244-6 (Version None)
Quarter: 2004Q1

REPORT INFORMATION
  Report Type: 
  Country: None (occurrence: None)
  Receive Date: 20040112
  Receipt Date: 20040112
  Transmission Date: 20041129
  Serious: Yes (Life-Threatening)
  Sender: FDA-Public Use
  Company Number: None

PATIENT
  Sex: Male
  Weight: 68.0396 kg

DRUGS (2)
  1. ZOSYN [Suspect]
     Indication: OSTEOMYELITIS
     Dosage: 3.375 G Q6  IV
     Route: 042
     Dates: start: 20031101, end: 20031121
  2. VANCOMYCIN [Concomitant]

REACTIONS (1)
  - NEUTROPENIA [None]
